FAERS Safety Report 4679658-8 (Version None)
Quarter: 2005Q2

REPORT INFORMATION
  Report Type: 
  Country: None (occurrence: None)
  Receive Date: 20050602
  Receipt Date: 20050520
  Transmission Date: 20051028
  Serious: Yes (Hospitalization)
  Sender: FDA-Public Use
  Company Number: JP-JNJFOC-20050504920

PATIENT
  Sex: Female

DRUGS (1)
  1. TAVANIC [Suspect]
     Indication: BRONCHOPNEUMONIA
     Dosage: 500
     Route: 049

REACTIONS (3)
  - FACIAL NEURALGIA [None]
  - INDURATION [None]
  - PARAESTHESIA [None]
